FAERS Safety Report 8841272 (Version 2)
Quarter: 2013Q1

REPORT INFORMATION
  Report Type: Spontaneous
  Country: US (occurrence: US)
  Receive Date: 20121015
  Receipt Date: 20130102
  Transmission Date: 20140127
  Serious: Yes (Death, Life-Threatening, Hospitalization)
  Sender: FDA-Public Use
  Company Number: US-ASTRAZENECA-2012SE77535

PATIENT
  Age: 50 Year
  Sex: Female
  Weight: 42.6 kg

DRUGS (8)
  1. SEROQUEL XR [Suspect]
     Indication: DEPRESSION
     Dosage: TOOK ABOUT 60 TABLETS
     Route: 048
  2. SEROQUEL XR [Suspect]
     Indication: MOOD SWINGS
     Dosage: TOOK ABOUT 60 TABLETS
     Route: 048
  3. SEROQUEL XR [Suspect]
     Indication: DEPRESSION
     Route: 048
     Dates: start: 20120529
  4. SEROQUEL XR [Suspect]
     Indication: MOOD SWINGS
     Route: 048
     Dates: start: 20120529
  5. KLONOPIN [Suspect]
     Indication: ANXIETY
     Route: 048
  6. PRISTIQ [Suspect]
     Indication: DEPRESSION
     Route: 048
     Dates: start: 20090506
  7. OTHER MEDICATIONS [Concomitant]
  8. LUNESTA [Concomitant]
     Indication: SLEEP DISORDER
     Route: 048
     Dates: start: 20120403

REACTIONS (9)
  - Overdose [Fatal]
  - Alcohol abuse [Recovering/Resolving]
  - Major depression [Fatal]
  - Respiratory failure [Not Recovered/Not Resolved]
  - Suicide attempt [Fatal]
  - Septic embolus [Unknown]
  - Cardiac valve vegetation [Unknown]
  - Anorexia and bulimia syndrome [Recovering/Resolving]
  - Depression [Unknown]
